FAERS Safety Report 6112872-3 (Version None)
Quarter: 2009Q1

REPORT INFORMATION
  Report Type: 
  Country: None (occurrence: None)
  Receive Date: 20090312
  Receipt Date: 20090305
  Transmission Date: 20090719
  Serious: Yes (Hospitalization)
  Sender: FDA-Public Use
  Company Number: FR-BAYER-200912235GPV

PATIENT
  Age: 85 Year
  Sex: Female

DRUGS (21)
  1. CIFLOX [Suspect]
     Indication: DRUG USE FOR UNKNOWN INDICATION
     Route: 048
     Dates: start: 20080225, end: 20081017
  2. CEFUROXIME [Suspect]
     Indication: DRUG USE FOR UNKNOWN INDICATION
     Route: 048
     Dates: start: 20080225, end: 20081017
  3. CEFUROXIME [Suspect]
     Route: 048
     Dates: start: 20081027, end: 20081030
  4. LAMISIL [Suspect]
     Indication: DRUG USE FOR UNKNOWN INDICATION
     Route: 048
     Dates: start: 20080209, end: 20081017
  5. DIGOXIN [Concomitant]
     Indication: DRUG USE FOR UNKNOWN INDICATION
     Route: 065
  6. ASPIRIN [Concomitant]
     Indication: DRUG USE FOR UNKNOWN INDICATION
     Route: 065
  7. NEURONTIN [Concomitant]
     Indication: DRUG USE FOR UNKNOWN INDICATION
     Route: 065
  8. LAROXYL [Concomitant]
     Indication: DRUG USE FOR UNKNOWN INDICATION
     Route: 065
  9. PERINDOPRIL ERBUMINE [Concomitant]
     Indication: DRUG USE FOR UNKNOWN INDICATION
     Dosage: UNIT DOSE: 2 MG
     Route: 065
     Dates: start: 20080201
  10. VANCOMYCIN [Concomitant]
     Indication: SKIN ULCER
     Route: 065
     Dates: start: 20070601, end: 20080201
  11. TIENAM [Concomitant]
     Indication: SKIN ULCER
     Route: 065
     Dates: start: 20070601, end: 20080201
  12. CALCIPARINE [Concomitant]
     Indication: DRUG USE FOR UNKNOWN INDICATION
     Route: 065
     Dates: end: 20081024
  13. RAPIFEN [Concomitant]
     Indication: OSTEITIS
     Route: 065
  14. DIPRIVAN [Concomitant]
     Indication: OSTEITIS
     Route: 065
  15. PERFALGAN [Concomitant]
     Indication: OSTEITIS
     Route: 065
  16. FORTUMSET [Concomitant]
     Indication: OSTEITIS
     Route: 065
  17. RINGER LACTATES [Concomitant]
     Indication: OSTEITIS
     Route: 065
  18. DESFLURANE [Concomitant]
     Indication: OSTEITIS
     Route: 065
  19. AMIKLIN [Concomitant]
     Indication: DRUG USE FOR UNKNOWN INDICATION
     Route: 065
     Dates: start: 20081022, end: 20081024
  20. BACTRIM [Concomitant]
     Indication: DRUG USE FOR UNKNOWN INDICATION
     Route: 065
  21. LASIX [Concomitant]
     Indication: DRUG USE FOR UNKNOWN INDICATION
     Route: 065

REACTIONS (2)
  - COAGULATION FACTOR DECREASED [None]
  - THROMBOCYTOPENIA [None]
